FAERS Safety Report 5194371-9 (Version None)
Quarter: 2006Q4

REPORT INFORMATION
  Report Type: 
  Country: None (occurrence: None)
  Receive Date: 20061228
  Receipt Date: 20061216
  Transmission Date: 20070319
  Serious: Yes (Other)
  Sender: FDA-Public Use
  Company Number: JP-PFIZER INC-2006154590

PATIENT

DRUGS (4)
  1. GABAPEN [Suspect]
     Dosage: DAILY DOSE:1800MG
     Route: 048
  2. TEGRETOL [Concomitant]
     Route: 048
  3. DEPAKENE [Concomitant]
     Route: 048
  4. RIVOTRIL [Concomitant]
     Route: 048

REACTIONS (1)
  - EPILEPSY [None]
